FAERS Safety Report 8824774 (Version 1)
Quarter: 2012Q4

REPORT INFORMATION
  Report Type: Report from Study
  Country: JP (occurrence: JP)
  Receive Date: 20121004
  Receipt Date: 20121004
  Transmission Date: 20130627
  Serious: Yes (Hospitalization)
  Sender: FDA-Public Use
  Company Number: JP-SANOFI-AVENTIS-2012SA072503

PATIENT
  Age: 69 Year
  Sex: Male
  Weight: 63 kg

DRUGS (15)
  1. CLOPIDOGREL BISULFATE [Suspect]
     Indication: DRUG USE FOR UNKNOWN INDICATION
     Dosage: loading dose
     Route: 065
     Dates: start: 20110311
  2. CLOPIDOGREL BISULFATE [Suspect]
     Indication: DRUG USE FOR UNKNOWN INDICATION
     Dosage: maintainence dose
     Route: 065
     Dates: start: 20110312, end: 20110316
  3. BAYASPIRIN [Concomitant]
     Dates: start: 20110311, end: 20110311
  4. BAYASPIRIN [Concomitant]
     Dates: start: 20110312
  5. BLOPRESS [Concomitant]
     Dates: end: 20110315
  6. LIPITOR /UNK/ [Concomitant]
     Dates: start: 20110312
  7. AMARYL [Concomitant]
     Dates: end: 20110316
  8. ARTIST [Concomitant]
     Dates: start: 20110312, end: 20110315
  9. ARTIST [Concomitant]
     Dates: start: 20110316, end: 20110318
  10. ARTIST [Concomitant]
     Dates: start: 20110319
  11. PARIET [Concomitant]
     Dates: start: 20110312
  12. PURSENNID /SCH/ [Concomitant]
     Dates: start: 20110315, end: 20110315
  13. APIDRA SOLOSTAR [Concomitant]
     Dates: start: 20110316
  14. LANTUS [Concomitant]
     Dates: start: 20110322
  15. PRAVASTATIN SODIUM [Concomitant]
     Dates: end: 20110311

REACTIONS (2)
  - Renal failure acute [Recovered/Resolved]
  - Anaemia [Recovering/Resolving]
